FAERS Safety Report 5160146-X (Version None)
Quarter: 2006Q4

REPORT INFORMATION
  Report Type: 
  Country: None (occurrence: None)
  Receive Date: 20061115
  Receipt Date: 20061025
  Transmission Date: 20070319
  Serious: No
  Sender: FDA-Public Use
  Company Number: US200608003086

PATIENT
  Age: 67 Year
  Sex: Female
  Weight: 54.4 kg

DRUGS (4)
  1. FORTEO [Suspect]
     Indication: OSTEOPOROSIS
     Dosage: 20 UG, DAILY (1/D),
     Dates: start: 20051201
  2. FORTEO PEN (250MCG/ML) [Concomitant]
  3. .............................. [Concomitant]
  4. VICODIN [Concomitant]

REACTIONS (6)
  - BACK PAIN [None]
  - COMPRESSION FRACTURE [None]
  - FALL [None]
  - MUSCLE SPASMS [None]
  - PHARMACEUTICAL PRODUCT COMPLAINT [None]
  - WEIGHT DECREASED [None]
